FAERS Safety Report 23672076 (Version 1)
Quarter: 2024Q1

REPORT INFORMATION
  Report Type: Spontaneous
  Country: US (occurrence: US)
  Receive Date: 20240326
  Receipt Date: 20240326
  Transmission Date: 20240410
  Serious: No
  Sender: FDA-Public Use
  Company Number: US-ALCON LABORATORIES-ALC2023US005643

PATIENT
  Age: 68 Year
  Sex: Male

DRUGS (1)
  1. PATADAY ONCE DAILY RELIEF [Suspect]
     Active Substance: OLOPATADINE HYDROCHLORIDE
     Indication: Product used for unknown indication
     Dosage: UNK
     Route: 047
     Dates: start: 20231206, end: 20231208

REACTIONS (5)
  - Conjunctivitis allergic [Recovering/Resolving]
  - Drug ineffective [Unknown]
  - Eye discharge [Recovering/Resolving]
  - Eyelid margin crusting [Recovering/Resolving]
  - Eye irritation [Recovering/Resolving]

NARRATIVE: CASE EVENT DATE: 20231207
